FAERS Safety Report 25114848 (Version 1)
Quarter: 2025Q1

REPORT INFORMATION
  Report Type: Spontaneous
  Country: CN (occurrence: CN)
  Receive Date: 20250324
  Receipt Date: 20250324
  Transmission Date: 20250409
  Serious: Yes (Hospitalization, Other)
  Sender: BRACCO
  Company Number: CN-BRACCO-2025CN01641

PATIENT
  Age: 74 Year
  Sex: Male

DRUGS (1)
  1. IOMERON [Suspect]
     Active Substance: IOMEPROL
     Indication: Computerised tomogram
     Route: 042
     Dates: start: 20250317, end: 20250317

REACTIONS (5)
  - Laryngeal oedema [Unknown]
  - Dyspnoea [Unknown]
  - Chest discomfort [Unknown]
  - Cyanosis [Unknown]
  - Aphasia [Unknown]

NARRATIVE: CASE EVENT DATE: 20250317
